FAERS Safety Report 9003125 (Version 1)
Quarter: 2013Q1

REPORT INFORMATION
  Report Type: Report from Study
  Country: DK (occurrence: DK)
  Receive Date: 20130108
  Receipt Date: 20130108
  Transmission Date: 20140127
  Serious: Yes (Hospitalization, Other)
  Sender: FDA-Public Use
  Company Number: DK-ROCHE-1175148

PATIENT
  Sex: Male

DRUGS (5)
  1. CAPECITABINE [Suspect]
     Indication: GASTRIC CANCER
     Dosage: DATE OF LAST DOSE ADMINISTERED: 24/JAN/2012
     Route: 065
     Dates: start: 20111223, end: 20111228
  2. CAPECITABINE [Suspect]
     Route: 065
     Dates: start: 20120104
  3. TRASTUZUMAB [Suspect]
     Indication: GASTRIC CANCER
     Route: 065
     Dates: start: 20111223
  4. OXALIPLATIN [Suspect]
     Indication: GASTRIC CANCER
     Route: 065
     Dates: start: 20111223
  5. DOCETAXEL [Suspect]
     Indication: GASTRIC CANCER
     Route: 065
     Dates: start: 20111223

REACTIONS (4)
  - Diarrhoea [Recovered/Resolved]
  - Pyrexia [Unknown]
  - General physical health deterioration [Recovered/Resolved]
  - Melaena [Recovered/Resolved]
